FAERS Safety Report 11937139 (Version 3)
Quarter: 2016Q2

REPORT INFORMATION
  Report Type: Report from Study
  Country: BR (occurrence: BR)
  Receive Date: 20160121
  Receipt Date: 20160623
  Transmission Date: 20160815
  Serious: Yes (Death, Hospitalization, Other)
  Sender: FDA-Public Use
  Company Number: PHHY2015BR154459

PATIENT
  Age: 76 Year
  Sex: Female
  Weight: 45 kg

DRUGS (2)
  1. EXJADE [Suspect]
     Active Substance: DEFERASIROX
     Indication: SICKLE CELL ANAEMIA
     Dosage: 10 MG/KG, QD (1 TABLET EVERY DAY IN THE MORNING)
     Route: 048
  2. EXJADE [Suspect]
     Active Substance: DEFERASIROX
     Dosage: 20 MG/KG, UNK
     Route: 065

REACTIONS (12)
  - Pneumonia [Unknown]
  - Lymphoma [Unknown]
  - Fatigue [Unknown]
  - Weight decreased [Unknown]
  - Nausea [Not Recovered/Not Resolved]
  - Dyspnoea [Unknown]
  - Memory impairment [Unknown]
  - Wound [Unknown]
  - Death [Fatal]
  - Abasia [Unknown]
  - Malaise [Unknown]
  - Decreased appetite [Unknown]

NARRATIVE: CASE EVENT DATE: 20160504
